FAERS Safety Report 5221870-3 (Version None)
Quarter: 2007Q1

REPORT INFORMATION
  Report Type: 
  Country: None (occurrence: None)
  Receive Date: 20070129
  Receipt Date: 20070116
  Transmission Date: 20070707
  Serious: Yes (Hospitalization)
  Sender: FDA-Public Use
  Company Number: HQ0980309FEB2000

PATIENT
  Sex: Female

DRUGS (9)
  1. ENBREL [Suspect]
     Indication: RHEUMATOID ARTHRITIS
     Route: 058
     Dates: start: 19990615, end: 19990710
  2. ENBREL [Suspect]
     Route: 058
     Dates: start: 19990901, end: 19990901
  3. ENBREL [Suspect]
     Route: 058
  4. FOLIC ACID [Concomitant]
  5. METHOTREXATE ^UPJOHN^ [Concomitant]
  6. PREDNISOLONE [Concomitant]
  7. TRAMADOL HCL [Concomitant]
  8. OMEPRAZOLE [Concomitant]
  9. CALCIUM WITH VITAMIN D [Concomitant]

REACTIONS (4)
  - ARTHRITIS BACTERIAL [None]
  - ERYSIPELAS [None]
  - IMMUNE SYSTEM DISORDER [None]
  - LEUKOPENIA [None]
